FAERS Safety Report 25332425 (Version 1)
Quarter: 2025Q2

REPORT INFORMATION
  Report Type: Spontaneous
  Country: US (occurrence: US)
  Receive Date: 20250519
  Receipt Date: 20250519
  Transmission Date: 20250716
  Serious: Yes (Death)
  Sender: MYLAN
  Company Number: US-MYLANLABS-2025M1042170

PATIENT

DRUGS (1)
  1. FENTANYL [Suspect]
     Active Substance: FENTANYL
     Indication: Pain

REACTIONS (1)
  - Overdose [Fatal]
